FAERS Safety Report 4352750-3 (Version None)
Quarter: 2004Q2

REPORT INFORMATION
  Report Type: 
  Country: None (occurrence: None)
  Receive Date: 20040429
  Receipt Date: 20040419
  Transmission Date: 20050107
  Serious: Yes (Death)
  Sender: FDA-Public Use
  Company Number: 04H-163-0258057-00

PATIENT
  Sex: Female

DRUGS (2)
  1. AMINOPHYLLIN [Suspect]
     Dosage: 1 GM, CONTINUOUSLY AT 80 ML/HOUR, INTRAVENOUS
     Route: 042
  2. GLUCOSE [Concomitant]

REACTIONS (5)
  - DELIRIUM [None]
  - DIALYSIS [None]
  - DRUG TOXICITY [None]
  - MEDICATION ERROR [None]
  - OVERDOSE [None]
